FAERS Safety Report 5472218-0 (Version None)
Quarter: 2007Q3

REPORT INFORMATION
  Report Type: 
  Country: None (occurrence: None)
  Receive Date: 20070926
  Receipt Date: 20070914
  Transmission Date: 20080115
  Serious: Yes (Hospitalization)
  Sender: FDA-Public Use
  Company Number: 2007US001518

PATIENT
  Age: 52 Year
  Sex: Female
  Weight: 103.4 kg

DRUGS (1)
  1. AMEVIVE [Suspect]
     Indication: PSORIASIS
     Dosage: 15 MG, WEEKLY, INTRAMUSCULAR
     Route: 030
     Dates: start: 20050509, end: 20060117

REACTIONS (2)
  - DEPRESSION [None]
  - HALLUCINATION, AUDITORY [None]
